FAERS Safety Report 12545687 (Version 1)
Quarter: 2016Q3

REPORT INFORMATION
  Report Type: Spontaneous
  Country: AU (occurrence: AU)
  Receive Date: 20160711
  Receipt Date: 20160711
  Transmission Date: 20161109
  Serious: Yes (Other)
  Sender: FDA-Public Use
  Company Number: AU-PFIZER INC-2016332405

PATIENT
  Sex: Male

DRUGS (1)
  1. PRISTIQ EXTENDED-RELEASE [Suspect]
     Active Substance: DESVENLAFAXINE SUCCINATE
     Dosage: 100 MG, EVERY SECOND DAY

REACTIONS (13)
  - Anal incontinence [Unknown]
  - Insomnia [Unknown]
  - Withdrawal syndrome [Unknown]
  - Disorientation [Unknown]
  - Pain [Unknown]
  - Mood swings [Unknown]
  - Hyperhidrosis [Unknown]
  - Dependence [Unknown]
  - Dizziness [Unknown]
  - Feeling of body temperature change [Unknown]
  - Fatigue [Unknown]
  - Vomiting [Unknown]
  - Headache [Unknown]
